FAERS Safety Report 9159255 (Version 1)
Quarter: 2013Q1

REPORT INFORMATION
  Report Type: Spontaneous
  Country: CA (occurrence: None)
  Receive Date: 20130213
  Receipt Date: 20130213
  Transmission Date: 20140127
  Serious: Yes (Other)
  Sender: FDA-Public Use
  Company Number: JPI-P-029637

PATIENT
  Age: 63 Year
  Sex: Female

DRUGS (4)
  1. XYREM (500 MILLIGRAM/MILLITERS, SOLUTION) (SODIUM OXYBATE) [Suspect]
     Indication: CATAPLEXY
     Dosage: 7.5 GM (3.75 GM, 2 IN 1 D), ORAL
     Route: 048
     Dates: start: 20050120
  2. DEXTROAMPHETAMINE [Concomitant]
     Dosage: 45 MG (15 MG 3 IN 1 D)
  3. RAMIPRIL [Concomitant]
     Dosage: 10 MG (10 MG, 1 IN 1 D)
  4. FLUOXETINE [Concomitant]
     Dosage: 20 MG (20 MG, 1 IN 1 D)

REACTIONS (1)
  - Malaise [None]
